FAERS Safety Report 9228160 (Version 1)
Quarter: 2013Q2

REPORT INFORMATION
  Report Type: Spontaneous
  Country: US (occurrence: None)
  Receive Date: 20130411
  Receipt Date: 20130411
  Transmission Date: 20140414
  Serious: Yes (Hospitalization, Other)
  Sender: FDA-Public Use
  Company Number: None

PATIENT
  Age: 62 Year
  Sex: Female
  Weight: 78.93 kg

DRUGS (1)
  1. BYSTOLIC [Suspect]
     Indication: HYPERTENSION
     Dosage: A DAY
     Dates: start: 20130201, end: 20130204

REACTIONS (1)
  - Visual impairment [None]
